FAERS Safety Report 7266906-3 (Version None)
Quarter: 2011Q1

REPORT INFORMATION
  Report Type: 
  Country: None (occurrence: None)
  Receive Date: 20110201
  Receipt Date: 20110119
  Transmission Date: 20110831
  Serious: Yes (Hospitalization, Other)
  Sender: FDA-Public Use
  Company Number: NO-ELI_LILLY_AND_COMPANY-NO201101004606

PATIENT
  Sex: Male

DRUGS (24)
  1. NOZINAN [Concomitant]
     Dosage: 75 MG, DAILY (1/D)
  2. CIPRAMIL [Concomitant]
     Dosage: 40 MG, DAILY (1/D)
  3. IMOVANE [Concomitant]
     Dosage: 5 MG, DAILY (1/D)
  4. GLUCOPHAGE [Concomitant]
     Dosage: 1000 MG, DAILY (1/D)
  5. LIPITOR [Concomitant]
     Dosage: 80 MG, DAILY (1/D)
  6. TENORMIN [Concomitant]
     Dosage: 25 MG, DAILY (1/D)
  7. CIPRALEX [Concomitant]
     Dosage: 10 MG, DAILY (1/D)
  8. ENALAPRIL MALEATE [Concomitant]
     Dosage: 20 MG, DAILY (1/D)
  9. ADALAT [Concomitant]
     Dosage: 60 MG, DAILY (1/D)
  10. GLUCOPHAGE [Concomitant]
     Dosage: 2000 MG, DAILY (1/D)
  11. ORFIRIL LONG [Concomitant]
     Dosage: 1500 MG, DAILY (1/D)
  12. LANSOPRAZOLE [Concomitant]
     Dosage: 30 MG, DAILY (1/D)
  13. EZETROL [Concomitant]
     Dosage: 10 MG, DAILY (1/D)
  14. CISORDINOL /00876702/ [Concomitant]
     Dosage: 20 MG, DAILY (1/D)
  15. EASPRIN [Concomitant]
     Dosage: 75 MG, DAILY (1/D)
  16. TEGRETOL [Concomitant]
     Dosage: 400 MG, DAILY (1/D)
  17. INSULIN INSULATARD /00030513/ [Concomitant]
     Dosage: UNK, DAILY (1/D)
  18. SEROQUEL [Concomitant]
     Dosage: 400 MG, UNK
  19. ZYPREXA [Suspect]
     Indication: SCHIZOPHRENIA, PARANOID TYPE
     Dosage: 15 MG, DAILY (1/D)
  20. SIMVASTATIN [Concomitant]
     Dosage: 60 MG, DAILY (1/D)
  21. SELO-ZOK [Concomitant]
     Dosage: 200 MG, DAILY (1/D)
  22. ZYPREXA [Suspect]
     Dosage: 25 MG, DAILY (1/D)
  23. AKINETON /00079501/ [Concomitant]
     Dosage: 6 MG, DAILY (1/D)
  24. ADALAT [Concomitant]
     Dosage: 30 MG, DAILY (1/D)

REACTIONS (7)
  - DRUG EFFECT DECREASED [None]
  - HOSPITALISATION [None]
  - MYOCARDIAL INFARCTION [None]
  - WEIGHT INCREASED [None]
  - DEVICE OCCLUSION [None]
  - TYPE 2 DIABETES MELLITUS [None]
  - OVERDOSE [None]
